FAERS Safety Report 12169489 (Version 3)
Quarter: 2016Q2

REPORT INFORMATION
  Report Type: Spontaneous
  Country: US (occurrence: US)
  Receive Date: 20160310
  Receipt Date: 20160516
  Transmission Date: 20160815
  Serious: No
  Sender: FDA-Public Use
  Company Number: US-BAYER-2016-047608

PATIENT
  Age: 22 Year
  Sex: Female

DRUGS (1)
  1. MIRENA [Suspect]
     Active Substance: LEVONORGESTREL
     Indication: CONTRACEPTION
     Dosage: 20 MCG/24HR, CONT
     Route: 015
     Dates: start: 20151204, end: 20160322

REACTIONS (5)
  - Abdominal pain lower [None]
  - Ovarian cyst [None]
  - Device expulsion [None]
  - Hydrometra [None]
  - Pelvic pain [None]

NARRATIVE: CASE EVENT DATE: 20160107
